FAERS Safety Report 16999651 (Version 1)
Quarter: 2019Q4

REPORT INFORMATION
  Report Type: Spontaneous
  Country: SE (occurrence: SE)
  Receive Date: 20191106
  Receipt Date: 20191106
  Transmission Date: 20200122
  Serious: Yes (Other)
  Sender: FDA-Public Use
  Company Number: SE-MYLANLABS-2019M1104584

PATIENT
  Age: 76 Year
  Sex: Female

DRUGS (18)
  1. ALENDRONATE [Suspect]
     Active Substance: ALENDRONATE SODIUM
     Indication: OSTEOPOROSIS
     Dosage: 70 MILLIGRAM, QW
     Dates: start: 20190409
  2. SPIRIVA [Concomitant]
     Active Substance: TIOTROPIUM BROMIDE MONOHYDRATE
     Dosage: 5 MICROGRAM, QD
     Route: 055
     Dates: start: 20171128
  3. BRICANYL [Concomitant]
     Active Substance: TERBUTALINE SULFATE
     Dosage: 1-2 INHALATION VID BEHOV
     Route: 055
     Dates: start: 20171127
  4. PARACETAMOL/KODEIN EVOLAN [Concomitant]
     Dosage: UNK (^1-2 TABLETT VID BEHOV, H?GST 8 TABLETTER PER DYGN^)
     Dates: start: 20190409
  5. CILAXORAL [Concomitant]
     Active Substance: SODIUM PICOSULFATE
     Dosage: UNK (10-20 DROPPAR TILL NATTEN VID BEHOV H?GST 20 DROPPAR)
     Dates: start: 20180406
  6. PRIMPERAN [Concomitant]
     Active Substance: METOCLOPRAMIDE HYDROCHLORIDE
     Dosage: 10 MILLIGRAM (1 TABLETT VID BEHOV, H?GST 3 TABLETTER)
     Dates: start: 20171127
  7. METOPROLOL. [Concomitant]
     Active Substance: METOPROLOL
     Dosage: 25 MILLIGRAM, QD
     Dates: start: 20171128
  8. CALCICHEW-D3 [Concomitant]
     Active Substance: CALCIUM\CHOLECALCIFEROL
     Dosage: 2 DOSAGE FORM, QD (CITRON 500 MG/400 IE )
     Dates: start: 20190409
  9. MOVICOL [Concomitant]
     Active Substance: POLYETHYLENE GLYCOL 3350\POTASSIUM CHLORIDE\SODIUM BICARBONATE\SODIUM CHLORIDE
     Dosage: UNK (^1 DOSP?SE VID BEHOV, H?GST 1 DOSP?SE PER DYGN^)
     Route: 048
     Dates: start: 20171127
  10. CITALOPRAM [Concomitant]
     Active Substance: CITALOPRAM HYDROBROMIDE
     Dosage: 40 MILLIGRAM, QD
     Dates: start: 20171128
  11. DUROFERON [Concomitant]
     Active Substance: FERROUS SULFATE
     Dosage: 100 MILLIGRAM, QD
     Dates: start: 20190118
  12. STILNOCT [Concomitant]
     Active Substance: ZOLPIDEM TARTRATE
     Dosage: 2.5 MILLIGRAM, PRN (0,5 TABLETT VID BEHOV)
     Dates: start: 20190211
  13. PANTOPRAZOLE [Concomitant]
     Active Substance: PANTOPRAZOLE
     Dosage: 40 MILLIGRAM, QD
     Dates: start: 20190328
  14. SYMBICORT [Concomitant]
     Active Substance: BUDESONIDE\FORMOTEROL FUMARATE DIHYDRATE
     Dosage: 2 DOSAGE FORM, QD
     Route: 055
     Dates: start: 20171127
  15. RAMIPRIL. [Concomitant]
     Active Substance: RAMIPRIL
     Dosage: 5 MILLIGRAM, QD
     Dates: start: 20180406
  16. WARAN [Concomitant]
     Active Substance: WARFARIN SODIUM
     Dosage: UNK (DOSERAS EFTER SVAR P? BLODPROV PK-INR)
     Dates: start: 20180909
  17. TAVEGYL [Concomitant]
     Active Substance: CLEMASTINE FUMARATE
     Dosage: 1 MILLIGRAM (1 TABLETT VID BEHOV, H?GST 2 TABLETTER PER DYGN)
     Dates: start: 20171127
  18. FOLACIN                            /00024201/ [Concomitant]
     Active Substance: FOLIC ACID
     Dosage: 1 MILLIGRAM, QD
     Dates: start: 20171128

REACTIONS (2)
  - Cough [Unknown]
  - Dyspnoea [Unknown]

NARRATIVE: CASE EVENT DATE: 2019
